FAERS Safety Report 7347581-6 (Version None)
Quarter: 2011Q1

REPORT INFORMATION
  Report Type: 
  Country: None (occurrence: None)
  Receive Date: 20110311
  Receipt Date: 20110302
  Transmission Date: 20110831
  Serious: Yes (Hospitalization)
  Sender: FDA-Public Use
  Company Number: US-ELI_LILLY_AND_COMPANY-US201103001126

PATIENT
  Sex: Female

DRUGS (4)
  1. HUMALOG [Suspect]
     Dosage: 13 U, AS NEEDED
     Route: 065
     Dates: start: 20110214
  2. HUMALOG [Suspect]
     Dosage: UNK, UNKNOWN
     Route: 065
  3. LANTUS [Concomitant]
     Indication: DIABETES MELLITUS
     Dosage: 48 U, 2/D
     Route: 065
  4. HUMALOG [Suspect]
     Indication: DIABETES MELLITUS
     Dosage: 13 U, AS NEEDED
     Route: 065
     Dates: start: 20110214

REACTIONS (16)
  - NERVE COMPRESSION [None]
  - PARAESTHESIA [None]
  - ABDOMINAL PAIN [None]
  - SKIN DISCOLOURATION [None]
  - DIARRHOEA [None]
  - HIP ARTHROPLASTY [None]
  - HYPOAESTHESIA [None]
  - INTESTINAL OBSTRUCTION [None]
  - VISUAL ACUITY REDUCED [None]
  - SCAR [None]
  - OEDEMA PERIPHERAL [None]
  - MUSCULOSKELETAL DISCOMFORT [None]
  - ARTHROPATHY [None]
  - BACK DISORDER [None]
  - ABDOMINAL DISCOMFORT [None]
  - SWELLING [None]
